FAERS Safety Report 16420247 (Version 10)
Quarter: 2020Q2

REPORT INFORMATION
  Report Type: Spontaneous
  Country: US (occurrence: US)
  Receive Date: 20190612
  Receipt Date: 20200521
  Transmission Date: 20200713
  Serious: Yes (Other)
  Sender: FDA-Public Use
  Company Number: US-PFIZER INC-2019251182

PATIENT
  Age: 75 Year
  Sex: Female
  Weight: 84 kg

DRUGS (3)
  1. ZOLOFT [Suspect]
     Active Substance: SERTRALINE HYDROCHLORIDE
     Indication: DEPRESSION
     Dosage: 100 MG, UNK
  2. ZOLOFT [Suspect]
     Active Substance: SERTRALINE HYDROCHLORIDE
     Indication: MULTIPLE SCLEROSIS
  3. ZOLOFT [Suspect]
     Active Substance: SERTRALINE HYDROCHLORIDE
     Indication: AFFECTIVE DISORDER

REACTIONS (13)
  - Malaise [Unknown]
  - Hypoacusis [Unknown]
  - Suicidal ideation [Unknown]
  - Multiple sclerosis relapse [Unknown]
  - Insomnia [Unknown]
  - Stress [Unknown]
  - Crying [Unknown]
  - Headache [Unknown]
  - Osteoarthritis [Unknown]
  - Withdrawal syndrome [Unknown]
  - Nausea [Unknown]
  - Decreased appetite [Unknown]
  - Poor quality sleep [Unknown]
